FAERS Safety Report 25897907 (Version 2)
Quarter: 2025Q4

REPORT INFORMATION
  Report Type: Spontaneous
  Country: US (occurrence: US)
  Receive Date: 20251008
  Receipt Date: 20251013
  Transmission Date: 20260118
  Serious: Yes (Hospitalization)
  Sender: NOVARTIS
  Company Number: US-002147023-NVSC2025US154136

PATIENT
  Sex: Male

DRUGS (4)
  1. MEKINIST [Suspect]
     Active Substance: TRAMETINIB DIMETHYL SULFOXIDE
     Indication: Thyroid cancer
     Dosage: 2 MG, QD
     Route: 048
     Dates: start: 202404
  2. TAFINLAR [Suspect]
     Active Substance: DABRAFENIB MESYLATE
     Indication: Thyroid cancer
     Dosage: 150 MG, BID
     Route: 048
     Dates: start: 202404
  3. LENVIMA [Concomitant]
     Active Substance: LENVATINIB
     Indication: Renal cancer
     Dosage: UNK
     Route: 065
  4. LENVIMA [Concomitant]
     Active Substance: LENVATINIB
     Indication: Thyroid cancer

REACTIONS (2)
  - Visual impairment [Unknown]
  - Vision blurred [Unknown]
